FAERS Safety Report 6394294-3 (Version None)
Quarter: 2009Q4

REPORT INFORMATION
  Report Type: 
  Country: None (occurrence: None)
  Receive Date: 20091006
  Receipt Date: 20090929
  Transmission Date: 20100525
  Serious: Yes (Hospitalization)
  Sender: FDA-Public Use
  Company Number: 2009SP027792

PATIENT
  Age: 45 Year
  Sex: Female
  Weight: 56.1 kg

DRUGS (2)
  1. TEMODAL [Suspect]
     Indication: GLIOBLASTOMA
     Dosage: 220 MG;QD;PO
     Route: 048
     Dates: start: 20081005, end: 20081117
  2. TEMODAL [Suspect]
     Indication: GLIOBLASTOMA
     Dosage: 220 MG;QD;PO
     Route: 048
     Dates: start: 20081124

REACTIONS (3)
  - HEPATITIS [None]
  - PANCYTOPENIA [None]
  - UTERINE HAEMORRHAGE [None]
